FAERS Safety Report 23125228 (Version 1)
Quarter: 2023Q4

REPORT INFORMATION
  Report Type: Spontaneous
  Country: US (occurrence: None)
  Receive Date: 20231025
  Receipt Date: 20231025
  Transmission Date: 20240110
  Serious: Yes (Hospitalization)
  Sender: FDA-Public Use
  Company Number: None

PATIENT
  Age: 46 Year
  Sex: Male

DRUGS (1)
  1. EPOGEN [Suspect]
     Active Substance: ERYTHROPOIETIN
     Dosage: OTHER STRENGTH : 20000 U/ML;?OTHER QUANTITY : 60000 UNITS;?FREQUENCY : EVERY OTHER WEEK;?

REACTIONS (1)
  - Renal disorder [None]

NARRATIVE: CASE EVENT DATE: 20231004
